FAERS Safety Report 10434494 (Version 5)
Quarter: 2024Q2

REPORT INFORMATION
  Report Type: Spontaneous
  Country: PL (occurrence: PL)
  Receive Date: 20140905
  Receipt Date: 20240624
  Transmission Date: 20240716
  Serious: Yes (Hospitalization, Other)
  Sender: FDA-Public Use
  Company Number: PL-ABBVIE-14P-129-1280497-00

PATIENT
  Age: 27 Year
  Sex: Female

DRUGS (7)
  1. VALPROATE SODIUM [Suspect]
     Active Substance: VALPROATE SODIUM
     Indication: Product used for unknown indication
     Route: 065
  2. OXYTOCIN [Suspect]
     Active Substance: OXYTOCIN
     Indication: Product used for unknown indication
     Route: 065
  3. CLOZAPINE [Suspect]
     Active Substance: CLOZAPINE
     Indication: Suicide attempt
     Dosage: UNK, 50 TA
     Route: 065
  4. FUROSEMIDE [Suspect]
     Active Substance: FUROSEMIDE
     Indication: Product used for unknown indication
     Route: 065
  5. PROMETHAZINE [Suspect]
     Active Substance: PROMETHAZINE HYDROCHLORIDE
     Indication: Product used for unknown indication
     Route: 065
  6. RISPERIDONE [Suspect]
     Active Substance: RISPERIDONE
     Indication: Depression
     Route: 065
  7. FLUOXETINE [Suspect]
     Active Substance: FLUOXETINE HYDROCHLORIDE
     Indication: Depression
     Route: 065

REACTIONS (13)
  - Seizure [Unknown]
  - Maternal exposure during pregnancy [Unknown]
  - Intentional overdose [Unknown]
  - Loss of consciousness [Unknown]
  - Live birth [Unknown]
  - Dyslalia [Unknown]
  - Vomiting [Unknown]
  - Confusional state [Unknown]
  - Agitation [Unknown]
  - Tachycardia [Unknown]
  - Tremor [Unknown]
  - Somnolence [Unknown]
  - Pyrexia [Unknown]
